FAERS Safety Report 17908191 (Version 2)
Quarter: 2020Q2

REPORT INFORMATION
  Report Type: Spontaneous
  Country: JP (occurrence: JP)
  Receive Date: 20200617
  Receipt Date: 20200623
  Transmission Date: 20200714
  Serious: Yes (Death, Other)
  Sender: FDA-Public Use
  Company Number: JP-ABBVIE-19K-087-3206181-00

PATIENT
  Age: 80 Year
  Sex: Female

DRUGS (1)
  1. DUODOPA [Suspect]
     Active Substance: CARBIDOPA\LEVODOPA
     Indication: PARKINSON^S DISEASE
     Dosage: OCT OR NOV-2019
     Route: 050
     Dates: start: 201910

REACTIONS (15)
  - Fall [Unknown]
  - Gait inability [Unknown]
  - Musculoskeletal disorder [Unknown]
  - Malaise [Unknown]
  - Dyskinesia [Unknown]
  - Musculoskeletal stiffness [Unknown]
  - Asthenia [Unknown]
  - Hyperhidrosis [Recovering/Resolving]
  - Death [Fatal]
  - Tremor [Recovering/Resolving]
  - Seizure [Recovering/Resolving]
  - Malaise [Recovered/Resolved]
  - Dyspnoea [Not Recovered/Not Resolved]
  - Mobility decreased [Unknown]
  - Fall [Recovered/Resolved]

NARRATIVE: CASE EVENT DATE: 20191213
